FAERS Safety Report 7380145-7 (Version None)
Quarter: 2011Q1

REPORT INFORMATION
  Report Type: 
  Country: None (occurrence: None)
  Receive Date: 20110329
  Receipt Date: 20100830
  Transmission Date: 20110831
  Serious: No
  Sender: FDA-Public Use
  Company Number: US-MYLANLABS-2010S1014315

PATIENT
  Age: 48 Year
  Sex: Female

DRUGS (6)
  1. ESTRADIOL [Suspect]
     Indication: HORMONE REPLACEMENT THERAPY
     Dosage: CHANGED QW
     Route: 062
     Dates: start: 20091101, end: 20100719
  2. MIRAPEX [Concomitant]
  3. STOOL SOFTENER [Concomitant]
  4. LUNESTA [Concomitant]
  5. LASIX [Concomitant]
  6. MORPHINE [Concomitant]

REACTIONS (4)
  - APPLICATION SITE SCAR [None]
  - APPLICATION SITE VESICLES [None]
  - APPLICATION SITE IRRITATION [None]
  - APPLICATION SITE PAIN [None]
